FAERS Safety Report 6803479-0 (Version None)
Quarter: 2010Q2

REPORT INFORMATION
  Report Type: 
  Country: None (occurrence: None)
  Receive Date: 20100628
  Receipt Date: 20100618
  Transmission Date: 20101027
  Serious: Yes (Death)
  Sender: FDA-Public Use
  Company Number: GXKR2010US06777

PATIENT

DRUGS (2)
  1. PREDNISONE (NGX) [Suspect]
     Indication: DERMATOMYOSITIS
     Dosage: 25-40 MG/D
     Route: 065
  2. AZATHIOPRINE SODIUM [Suspect]
     Indication: DERMATOMYOSITIS
     Dosage: 75 MG/D
     Route: 065

REACTIONS (1)
  - PNEUMOCYSTIS JIROVECI PNEUMONIA [None]
